FAERS Safety Report 8436750-X (Version None)
Quarter: 2012Q2

REPORT INFORMATION
  Report Type: 
  Country: None (occurrence: None)
  Receive Date: 20120614
  Receipt Date: 20120611
  Transmission Date: 20120825
  Serious: Yes (Hospitalization)
  Sender: FDA-Public Use
  Company Number: US-MERCK-1206USA01909

PATIENT
  Age: 45 Year
  Sex: Male

DRUGS (2)
  1. TRUVADA [Concomitant]
     Route: 065
  2. ISENTRESS [Suspect]
     Route: 048
     Dates: start: 20090101, end: 20120610

REACTIONS (3)
  - ANXIETY [None]
  - TACHYCARDIA [None]
  - DEPRESSED MOOD [None]
